FAERS Safety Report 4604765-5 (Version None)
Quarter: 2005Q1

REPORT INFORMATION
  Report Type: 
  Country: None (occurrence: None)
  Receive Date: 20050224
  Receipt Date: 20041201
  Transmission Date: 20050727
  Serious: No
  Sender: FDA-Public Use
  Company Number: SU-2004-002929

PATIENT
  Sex: Male

DRUGS (3)
  1. BENICAR [Suspect]
     Indication: HYPERTENSION
     Dosage: 20 MG QD PO
     Route: 048
  2. BENICAR [Suspect]
     Indication: HYPERTENSION
     Dosage: 40 MG QD PO
     Route: 048
  3. LIPITOR [Concomitant]

REACTIONS (1)
  - RASH [None]
